FAERS Safety Report 6035274-7 (Version None)
Quarter: 2009Q1

REPORT INFORMATION
  Report Type: 
  Country: None (occurrence: None)
  Receive Date: 20090109
  Receipt Date: 20081230
  Transmission Date: 20090719
  Serious: Yes (Hospitalization, Other)
  Sender: FDA-Public Use
  Company Number: 2008AP003619

PATIENT
  Age: 56 Year
  Sex: Male

DRUGS (17)
  1. DILTIAZEM HYDROCHLORIDE [Suspect]
     Indication: ANGINA PECTORIS
     Dosage: 60 MG; BID
  2. DILTIAZEM HYDROCHLORIDE [Suspect]
     Indication: CARDIAC FAILURE
     Dosage: 60 MG; BID
  3. CYCLOSPORINE [Suspect]
     Dosage: 75 MG; BID
  4. CARVEDILOL [Suspect]
     Indication: ANGINA PECTORIS
     Dosage: 12.5 MG;BID
  5. CARVEDILOL [Suspect]
     Indication: CARDIAC FAILURE
     Dosage: 12.5 MG;BID
  6. SIMVASTATIN [Suspect]
     Dosage: 40 MG;QD
  7. RANOLAZINE [Suspect]
     Indication: ANGINA PECTORIS
     Dosage: 500 MG;QD
  8. RANOLAZINE [Suspect]
     Indication: CARDIAC FAILURE
     Dosage: 500 MG;QD
  9. METOPROLOL TARTRATE [Concomitant]
  10. FUROSEMIDE [Concomitant]
  11. TAMSULOSIN HCL [Concomitant]
  12. SERTRALINE [Concomitant]
  13. FLUDROCORTISONE ACETATE [Concomitant]
  14. CLONIDINE [Concomitant]
  15. ESOMEPRAZOLE [Concomitant]
  16. CLOPIDOGREL [Concomitant]
  17. INSULIN GLARGINE [Concomitant]

REACTIONS (2)
  - DRUG INTERACTION [None]
  - RHABDOMYOLYSIS [None]
